FAERS Safety Report 4431858-8 (Version None)
Quarter: 2004Q3

REPORT INFORMATION
  Report Type: 
  Country: None (occurrence: None)
  Receive Date: 20040819
  Receipt Date: 20040805
  Transmission Date: 20050211
  Serious: Yes (Hospitalization, Other)
  Sender: FDA-Public Use
  Company Number: 198334

PATIENT
  Age: 39 Year
  Sex: Male

DRUGS (3)
  1. AVONEX [Suspect]
     Indication: MULTIPLE SCLEROSIS
     Dosage: 30 MCG QW IM
     Route: 030
  2. MEDICATION (NOS) [Concomitant]
  3. BACLOFEN [Concomitant]

REACTIONS (5)
  - GALLBLADDER OPERATION [None]
  - GASTRIC BYPASS [None]
  - THYROID GLAND CANCER [None]
  - VOCAL CORD PARALYSIS [None]
  - WEIGHT DECREASED [None]
